FAERS Safety Report 12176874 (Version 1)
Quarter: 2016Q1

REPORT INFORMATION
  Report Type: Spontaneous
  Country: DE (occurrence: DE)
  Receive Date: 20160315
  Receipt Date: 20160315
  Transmission Date: 20160526
  Serious: Yes (Other)
  Sender: FDA-Public Use
  Company Number: DE-AMGEN-DEUSP2016030275

PATIENT
  Sex: Female

DRUGS (1)
  1. ARANESP [Suspect]
     Active Substance: DARBEPOETIN ALFA
     Indication: PRODUCT USED FOR UNKNOWN INDICATION
     Dosage: 10 MCG, WEEKLY OR ONCE EVERY TWO WEEKS
     Route: 065

REACTIONS (2)
  - Hypertension [Unknown]
  - Surgery [Unknown]

NARRATIVE: CASE EVENT DATE: 201603
